FAERS Safety Report 20777204 (Version 1)
Quarter: 2022Q2

REPORT INFORMATION
  Report Type: Spontaneous
  Country: IT (occurrence: IT)
  Receive Date: 20220503
  Receipt Date: 20220503
  Transmission Date: 20220721
  Serious: Yes (Other)
  Sender: FDA-Public Use
  Company Number: IT-OCTA-LIT01922IT

PATIENT
  Age: 34 Year
  Sex: Female

DRUGS (5)
  1. HUMAN IMMUNOGLOBULIN G [Suspect]
     Active Substance: HUMAN IMMUNOGLOBULIN G
     Indication: Pemphigus
     Route: 042
  2. PREDNISONE [Concomitant]
     Active Substance: PREDNISONE
     Indication: Pemphigus
     Route: 048
  3. AZATHIOPRINE [Concomitant]
     Active Substance: AZATHIOPRINE
     Indication: Pemphigus
     Route: 048
  4. CLORDEMETILDIAZEPAM [Concomitant]
     Indication: Premedication
     Route: 042
  5. SALICYLIC ACID [Concomitant]
     Active Substance: SALICYLIC ACID
     Indication: Premedication

REACTIONS (3)
  - Meningitis aseptic [Recovered/Resolved]
  - Laryngospasm [Recovered/Resolved]
  - Rash [Recovered/Resolved]
